FAERS Safety Report 5157962-7 (Version None)
Quarter: 2006Q4

REPORT INFORMATION
  Report Type: 
  Country: None (occurrence: None)
  Receive Date: 20061127
  Receipt Date: 20061117
  Transmission Date: 20070319
  Serious: Yes (Life-Threatening)
  Sender: FDA-Public Use
  Company Number: FR-ABBOTT-06P-056-0350710-00

PATIENT
  Age: 55 Year
  Sex: Female

DRUGS (2)
  1. DEPAKENE [Suspect]
     Indication: STATUS EPILEPTICUS
     Route: 048
     Dates: start: 20061014, end: 20061018
  2. PHENYTOIN SODIUM [Concomitant]
     Indication: STATUS EPILEPTICUS
     Route: 065
     Dates: start: 20060919, end: 20061013

REACTIONS (7)
  - AREFLEXIA [None]
  - DEPRESSED LEVEL OF CONSCIOUSNESS [None]
  - DYSARTHRIA [None]
  - ELECTROENCEPHALOGRAM ABNORMAL [None]
  - HEMIPARESIS [None]
  - HYPERAMMONAEMIA [None]
  - HYPERREFLEXIA [None]
